FAERS Safety Report 20524987 (Version 2)
Quarter: 2023Q2

REPORT INFORMATION
  Report Type: Report from Study
  Country: US (occurrence: US)
  Receive Date: 20220228
  Receipt Date: 20230520
  Transmission Date: 20230722
  Serious: Yes (Other)
  Sender: FDA-Public Use
  Company Number: US-SHIRE-US202025622

PATIENT
  Sex: Female

DRUGS (1)
  1. HUMAN IMMUNOGLOBULIN G [Suspect]
     Active Substance: HUMAN IMMUNOGLOBULIN G
     Indication: Primary immunodeficiency syndrome
     Dosage: UNK
     Route: 042

REACTIONS (8)
  - Leukaemia [Unknown]
  - Pneumonia [Unknown]
  - Lung disorder [Unknown]
  - Stress [Unknown]
  - Blood pressure increased [Unknown]
  - Dyspnoea [Unknown]
  - Cough [Unknown]
  - Illness [Unknown]
